FAERS Safety Report 17007094 (Version 1)
Quarter: 2019Q4

REPORT INFORMATION
  Report Type: Spontaneous
  Country: US (occurrence: US)
  Receive Date: 20190927
  Receipt Date: 20190927
  Transmission Date: 20200122
  Serious: Yes (Other)
  Sender: FDA-Public Use
  Company Number: None

PATIENT
  Age: 20 Year
  Sex: Female
  Weight: 94.2 kg

DRUGS (1)
  1. NORETHINDRONE 0.35MG GENERIC + NORA-BE [Suspect]
     Active Substance: NORETHINDRONE
     Indication: MENSTRUATION IRREGULAR
     Dosage: ?          OTHER DOSE:1 TABLET;?
     Route: 048
     Dates: start: 201906

REACTIONS (5)
  - Product substitution issue [None]
  - Insurance issue [None]
  - Abdominal discomfort [None]
  - Metrorrhagia [None]
  - Abdominal pain [None]

NARRATIVE: CASE EVENT DATE: 20190901
